FAERS Safety Report 9193733 (Version 1)
Quarter: 2013Q1

REPORT INFORMATION
  Report Type: Spontaneous
  Country: US (occurrence: US)
  Receive Date: 20130327
  Receipt Date: 20130327
  Transmission Date: 20140127
  Serious: Yes (Other)
  Sender: FDA-Public Use
  Company Number: 2013SP000820

PATIENT
  Sex: Female

DRUGS (2)
  1. LUNESTA [Suspect]
     Indication: INSOMNIA
     Route: 048
     Dates: start: 2012, end: 2012
  2. HYPNOTICS AND SEDATIVES [Concomitant]
     Indication: INSOMNIA

REACTIONS (1)
  - Breast cancer [Not Recovered/Not Resolved]
